FAERS Safety Report 4764085-5 (Version None)
Quarter: 2005Q3

REPORT INFORMATION
  Report Type: 
  Country: None (occurrence: None)
  Receive Date: 20050908
  Receipt Date: 20050831
  Transmission Date: 20060218
  Serious: Yes (Other)
  Sender: FDA-Public Use
  Company Number: PL-MERCK-0509POL00001

PATIENT
  Age: 79 Year
  Sex: Male

DRUGS (1)
  1. VIOXX [Suspect]
     Indication: BONE PAIN
     Route: 065
     Dates: start: 20020101, end: 20041001

REACTIONS (1)
  - MYOCARDIAL INFARCTION [None]
